FAERS Safety Report 8525010 (Version 3)
Quarter: 2013Q4

REPORT INFORMATION
  Report Type: Spontaneous
  Country: NO (occurrence: NO)
  Receive Date: 20120423
  Receipt Date: 20131009
  Transmission Date: 20140711
  Serious: Yes (Disabling)
  Sender: FDA-Public Use
  Company Number: NO-PFIZER INC-2012097255

PATIENT
  Age: 50 Year
  Sex: Male

DRUGS (7)
  1. CORDARONE [Suspect]
     Indication: ATRIAL FIBRILLATION
     Dosage: UNK
     Route: 065
     Dates: start: 200411, end: 2005
  2. WARFARIN [Concomitant]
     Dosage: UNK
  3. TAMBOCOR [Concomitant]
     Dosage: UNK
     Dates: start: 2012, end: 20120820
  4. ISOPTIN [Concomitant]
     Dosage: UNK
  5. ALBYL-E [Concomitant]
     Dosage: UNK
     Dates: start: 2012
  6. SOBRIL [Concomitant]
     Indication: TIC
     Dosage: UNK
  7. DIGITOXIN [Concomitant]
     Dosage: UNK

REACTIONS (2)
  - Tic [Recovered/Resolved]
  - Tic [Recovered/Resolved]
